FAERS Safety Report 7359570-6 (Version None)
Quarter: 2011Q1

REPORT INFORMATION
  Report Type: 
  Country: None (occurrence: None)
  Receive Date: 20110317
  Receipt Date: 20100223
  Transmission Date: 20110831
  Serious: Yes (Other)
  Sender: FDA-Public Use
  Company Number: US-PFIZER INC-2010024100

PATIENT
  Sex: Male

DRUGS (4)
  1. NORVASC [Suspect]
  2. MICARDIS [Suspect]
  3. LISINOPRIL [Suspect]
  4. DIOVAN [Suspect]

REACTIONS (5)
  - HYPOAESTHESIA TEETH [None]
  - HYPOAESTHESIA FACIAL [None]
  - COUGH [None]
  - DRUG INEFFECTIVE [None]
  - HYPOAESTHESIA ORAL [None]
